FAERS Safety Report 6998129-7 (Version None)
Quarter: 2010Q3

REPORT INFORMATION
  Report Type: 
  Country: None (occurrence: None)
  Receive Date: 20100920
  Receipt Date: 20070703
  Transmission Date: 20110219
  Serious: Yes (Other)
  Sender: FDA-Public Use
  Company Number: US-ASTRAZENECA-2006UW11523

PATIENT
  Age: 38 Year
  Sex: Male
  Weight: 110.7 kg

DRUGS (21)
  1. SEROQUEL [Suspect]
     Indication: ANXIETY
     Route: 048
     Dates: start: 20000101, end: 20020101
  2. SEROQUEL [Suspect]
     Indication: DEPRESSION
     Route: 048
     Dates: start: 20000101, end: 20020101
  3. SEROQUEL [Suspect]
     Indication: BIPOLAR DISORDER
     Route: 048
     Dates: start: 20000101, end: 20020101
  4. SEROQUEL [Suspect]
     Dosage: 100MG - 300MG, AT NIGHT
     Route: 048
     Dates: start: 20000302
  5. SEROQUEL [Suspect]
     Dosage: 100MG - 300MG, AT NIGHT
     Route: 048
     Dates: start: 20000302
  6. SEROQUEL [Suspect]
     Dosage: 100MG - 300MG, AT NIGHT
     Route: 048
     Dates: start: 20000302
  7. GEODON [Concomitant]
     Dosage: 20 MG AT AM, 40 MG AT PM
  8. RISPERDAL [Concomitant]
     Dates: start: 20000101, end: 20040101
  9. RITALIN [Concomitant]
     Dates: start: 20050526
  10. XANAX [Concomitant]
     Dosage: 3MG -4MG
     Dates: start: 20030928
  11. NEURONTIN [Concomitant]
     Dosage: 800MG - 3600MG
     Dates: start: 20000802
  12. PROZAC [Concomitant]
     Dates: start: 20000815
  13. AMBIEN [Concomitant]
     Indication: INSOMNIA
     Dates: start: 20030824
  14. NEXIUM [Concomitant]
     Indication: GASTROOESOPHAGEAL REFLUX DISEASE
     Dates: start: 20050630
  15. COREG [Concomitant]
     Dates: start: 20061116
  16. LISINOPRIL [Concomitant]
     Dates: start: 20061116
  17. LASIX [Concomitant]
     Dates: start: 20061116
  18. ATIVAN [Concomitant]
     Dates: start: 20061116
  19. CELEBREX [Concomitant]
     Dosage: 200MG -400MG
     Dates: start: 20061116
  20. TRAZODONE HCL [Concomitant]
     Dates: start: 20061116
  21. ASPIRIN [Concomitant]
     Dates: start: 20030928

REACTIONS (3)
  - DIABETES MELLITUS [None]
  - DIABETES MELLITUS INADEQUATE CONTROL [None]
  - TYPE 1 DIABETES MELLITUS [None]
